FAERS Safety Report 7589806-8 (Version None)
Quarter: 2011Q3

REPORT INFORMATION
  Report Type: 
  Country: None (occurrence: None)
  Receive Date: 20110705
  Receipt Date: 20110621
  Transmission Date: 20111222
  Serious: Yes (Hospitalization, Other)
  Sender: FDA-Public Use
  Company Number: DE-BAYER-2011-048601

PATIENT
  Age: 28 Year
  Sex: Female
  Weight: 53 kg

DRUGS (2)
  1. SULFASALAZINE [Concomitant]
     Indication: ANKYLOSING SPONDYLITIS
     Dosage: DAILY DOSE 2 G
     Dates: start: 20101101, end: 20110301
  2. MIRENA [Suspect]
     Indication: CONTRACEPTION
     Dosage: UNK
     Route: 015
     Dates: start: 20081001, end: 20110301

REACTIONS (36)
  - HYPERPROLACTINAEMIA [None]
  - OEDEMA [None]
  - COLD SWEAT [None]
  - CONVULSION [None]
  - ABDOMINAL DISTENSION [None]
  - HYPERTENSION [None]
  - NAUSEA [None]
  - FEELING COLD [None]
  - HYPERVENTILATION [None]
  - DYSGEUSIA [None]
  - DRY SKIN [None]
  - DIZZINESS [None]
  - ALOPECIA [None]
  - HIRSUTISM [None]
  - MOOD SWINGS [None]
  - VAGINAL DISCHARGE [None]
  - DEVICE DISLOCATION [None]
  - HYPOTHYROIDISM [None]
  - ACNE [None]
  - TACHYCARDIA [None]
  - CYSTITIS NONINFECTIVE [None]
  - OVARIAN CYST [None]
  - SMEAR CERVIX ABNORMAL [None]
  - FLATULENCE [None]
  - TETANY [None]
  - MENORRHAGIA [None]
  - CONSTIPATION [None]
  - FATIGUE [None]
  - ARRHYTHMIA [None]
  - PYREXIA [None]
  - ABDOMINAL PAIN [None]
  - GALACTORRHOEA [None]
  - VAGINAL HAEMORRHAGE [None]
  - WEIGHT INCREASED [None]
  - SLEEP DISORDER [None]
  - GINGIVITIS [None]
